FAERS Safety Report 5606200-7 (Version None)
Quarter: 2008Q1

REPORT INFORMATION
  Report Type: 
  Country: None (occurrence: None)
  Receive Date: 20080129
  Receipt Date: 20070129
  Transmission Date: 20080703
  Serious: No
  Sender: FDA-Public Use
  Company Number: A0637517A

PATIENT
  Age: 17 Year
  Sex: Female

DRUGS (2)
  1. WELLBUTRIN [Suspect]
     Dosage: 300MG PER DAY
  2. LAMICTAL [Suspect]
     Dosage: 100MG TWICE PER DAY

REACTIONS (3)
  - DRUG INTERACTION [None]
  - INSOMNIA [None]
  - NAUSEA [None]
